FAERS Safety Report 9835136 (Version 1)
Quarter: 2014Q1

REPORT INFORMATION
  Report Type: Spontaneous
  Country: US (occurrence: US)
  Receive Date: 20140122
  Receipt Date: 20140122
  Transmission Date: 20141002
  Serious: No
  Sender: FDA-Public Use
  Company Number: US-BRISTOL-MYERS SQUIBB COMPANY-19809557

PATIENT
  Age: 83 Year
  Sex: Male
  Weight: 68.03 kg

DRUGS (2)
  1. COUMADIN [Suspect]
  2. ELIQUIS [Suspect]
     Dosage: START DT: 09-NOV-2013

REACTIONS (1)
  - Asthenia [Not Recovered/Not Resolved]
